FAERS Safety Report 6716269-4 (Version None)
Quarter: 2010Q2

REPORT INFORMATION
  Report Type: 
  Country: None (occurrence: None)
  Receive Date: 20100507
  Receipt Date: 20100430
  Transmission Date: 20101027
  Serious: Yes (Other)
  Sender: FDA-Public Use
  Company Number: US-PURDUE-USA-2010-0043714

PATIENT
  Sex: Female

DRUGS (1)
  1. OXYCONTIN [Suspect]
     Indication: DRUG USE FOR UNKNOWN INDICATION
     Dosage: 40 MG, Q8H
     Dates: start: 20070129

REACTIONS (4)
  - INADEQUATE ANALGESIA [None]
  - MALAISE [None]
  - PAIN IN EXTREMITY [None]
  - PNEUMONIA [None]
